FAERS Safety Report 7222703-6 (Version None)
Quarter: 2011Q1

REPORT INFORMATION
  Report Type: 
  Country: None (occurrence: None)
  Receive Date: 20110112
  Receipt Date: 20101223
  Transmission Date: 20110831
  Serious: No
  Sender: FDA-Public Use
  Company Number: US-B.I. PHARMACEUTICALS,INC./RIDGEFIELD-2011-BP-00058BP

PATIENT
  Age: 70 Year
  Sex: Male

DRUGS (6)
  1. ASPIRIN [Concomitant]
     Indication: ATRIAL FIBRILLATION
  2. ALLOPURINOL [Concomitant]
     Indication: GOUT
  3. LOVASTATIN [Concomitant]
     Indication: BLOOD CHOLESTEROL INCREASED
  4. PRADAXA [Suspect]
     Indication: ATRIAL FIBRILLATION
     Dosage: 300 MG
     Route: 048
     Dates: start: 20101201
  5. MULTAQ [Concomitant]
     Indication: ATRIAL FIBRILLATION
  6. BENICAR HCT [Concomitant]
     Indication: HYPERTENSION

REACTIONS (2)
  - URINE COLOUR ABNORMAL [None]
  - BLEEDING TIME PROLONGED [None]
